FAERS Safety Report 14123123 (Version 1)
Quarter: 2017Q4

REPORT INFORMATION
  Report Type: Spontaneous
  Country: US (occurrence: US)
  Receive Date: 20171024
  Receipt Date: 20171024
  Transmission Date: 20180321
  Serious: No
  Sender: FDA-Public Use
  Company Number: None

PATIENT
  Age: 77 Year
  Sex: Female
  Weight: 74.7 kg

DRUGS (1)
  1. COSENTYX [Suspect]
     Active Substance: SECUKINUMAB
     Indication: PSORIASIS
     Dosage: ?          OTHER FREQUENCY:300 MG QWK X5 THEN;?
     Route: 058
     Dates: start: 20170928, end: 20171012

REACTIONS (2)
  - Psoriasis [None]
  - Condition aggravated [None]

NARRATIVE: CASE EVENT DATE: 20171016
